FAERS Safety Report 14012066 (Version 6)
Quarter: 2019Q4

REPORT INFORMATION
  Report Type: Report from Study
  Country: US (occurrence: US)
  Receive Date: 20170926
  Receipt Date: 20191105
  Transmission Date: 20200122
  Serious: Yes (Other)
  Sender: FDA-Public Use
  Company Number: PHHY2017US141068

PATIENT
  Age: 54 Year
  Sex: Female

DRUGS (1)
  1. GILENYA [Suspect]
     Active Substance: FINGOLIMOD HYDROCHLORIDE
     Indication: MULTIPLE SCLEROSIS
     Dosage: 0.5 MG, QD
     Route: 048
     Dates: start: 20150212

REACTIONS (9)
  - White blood cell count decreased [Unknown]
  - Vision blurred [Unknown]
  - Pain in jaw [Unknown]
  - Lymphocyte count decreased [Unknown]
  - Disturbance in attention [Unknown]
  - Temporomandibular joint syndrome [Unknown]
  - Neutropenia [Unknown]
  - Back pain [Unknown]
  - Vitreous floaters [Unknown]

NARRATIVE: CASE EVENT DATE: 20170419
